FAERS Safety Report 12600595 (Version 2)
Quarter: 2016Q3

REPORT INFORMATION
  Report Type: Spontaneous
  Country: GB (occurrence: GB)
  Receive Date: 20160727
  Receipt Date: 20160801
  Transmission Date: 20161109
  Serious: Yes (Hospitalization)
  Sender: FDA-Public Use
  Company Number: GB-SA-2016SA133142

PATIENT
  Age: 50 Year
  Sex: Female

DRUGS (2)
  1. OMEPRAZOLE. [Concomitant]
     Active Substance: OMEPRAZOLE
     Indication: DYSPEPSIA
     Route: 065
     Dates: start: 201604
  2. TAXOTERE [Suspect]
     Active Substance: DOCETAXEL
     Indication: BREAST CANCER
     Dosage: 160 MG (FIRST CYCLE OF 3, GIVEN EVERY 3 WEEKS
     Route: 065
     Dates: start: 20160718, end: 20160718

REACTIONS (7)
  - Neutropenia [Unknown]
  - Oral candidiasis [Recovering/Resolving]
  - Arthralgia [Recovering/Resolving]
  - Adverse event [Unknown]
  - Bone pain [Recovering/Resolving]
  - Oral pain [Recovering/Resolving]
  - Diarrhoea [Recovered/Resolved]
